FAERS Safety Report 20452636 (Version 8)
Quarter: 2022Q3

REPORT INFORMATION
  Report Type: Report from Study
  Country: US (occurrence: US)
  Receive Date: 20220210
  Receipt Date: 20220921
  Transmission Date: 20221027
  Serious: Yes (Hospitalization)
  Sender: FDA-Public Use
  Company Number: US-BoehringerIngelheim-2021-BI-140591

PATIENT
  Sex: Female
  Weight: 108.8 kg

DRUGS (2)
  1. OFEV [Suspect]
     Active Substance: NINTEDANIB
     Indication: Idiopathic pulmonary fibrosis
     Dosage: LOT NO. 102654
     Route: 048
     Dates: start: 20211108
  2. TYVASO [Concomitant]
     Active Substance: TREPROSTINIL
     Indication: Product used for unknown indication
     Dosage: 18-72 ?G
     Route: 055
     Dates: start: 20210902

REACTIONS (6)
  - Pneumonia [Unknown]
  - Haemoptysis [Recovering/Resolving]
  - Influenza [Recovering/Resolving]
  - COVID-19 [Recovering/Resolving]
  - Dry skin [Unknown]
  - Oropharyngeal pain [Unknown]
